FAERS Safety Report 14636348 (Version 11)
Quarter: 2019Q2

REPORT INFORMATION
  Report Type: Report from Study
  Country: DE (occurrence: DE)
  Receive Date: 20180314
  Receipt Date: 20190520
  Transmission Date: 20190711
  Serious: Yes (Death, Life-Threatening, Hospitalization, Other)
  Sender: FDA-Public Use
  Company Number: PHHY2018DE018373

PATIENT
  Age: 68 Year
  Sex: Female
  Weight: 90 kg

DRUGS (6)
  1. COSENTYX [Suspect]
     Active Substance: SECUKINUMAB
     Indication: PSORIASIS
     Dosage: 300 MG, Q4W
     Route: 065
     Dates: start: 20160229, end: 20160403
  2. COSENTYX [Suspect]
     Active Substance: SECUKINUMAB
     Dosage: 300 MG, Q4W
     Route: 065
     Dates: start: 20160404, end: 20171113
  3. TOPIRAMATE. [Concomitant]
     Active Substance: TOPIRAMATE
     Indication: EPILEPSY
     Dosage: 200 MG, UNK (STOPPED }1 YEAR)
     Route: 048
  4. CIPRALEX [Concomitant]
     Active Substance: ESCITALOPRAM OXALATE
     Indication: PRODUCT USED FOR UNKNOWN INDICATION
     Dosage: 10 MG, UNK (STARTED } 1 YEAR)
     Route: 065
  5. JANUMET [Concomitant]
     Active Substance: METFORMIN HYDROCHLORIDE\SITAGLIPTIN PHOSPHATE
     Indication: TYPE 2 DIABETES MELLITUS
     Dosage: 1 DF(50/1000MG), UNK
     Route: 048
  6. MIRTAZAPINE. [Concomitant]
     Active Substance: MIRTAZAPINE
     Indication: PRODUCT USED FOR UNKNOWN INDICATION
     Dosage: 15 MG, UNK (STARTED } 1 YEAR)
     Route: 065

REACTIONS (26)
  - Circulatory collapse [Recovered/Resolved]
  - Mediastinal disorder [Not Recovered/Not Resolved]
  - Atrial fibrillation [Not Recovered/Not Resolved]
  - Hypertension [Unknown]
  - Vitamin B12 deficiency [Not Recovered/Not Resolved]
  - Pain [Fatal]
  - Aortic valve sclerosis [Not Recovered/Not Resolved]
  - Weight decreased [Not Recovered/Not Resolved]
  - Pleural effusion [Not Recovered/Not Resolved]
  - Pneumonia aspiration [Not Recovered/Not Resolved]
  - Miller Fisher syndrome [Fatal]
  - Pulmonary hypertension [Not Recovered/Not Resolved]
  - Bronchitis [Not Recovered/Not Resolved]
  - Intertrigo [Recovered/Resolved]
  - Circulatory collapse [Fatal]
  - Aortic dilatation [Not Recovered/Not Resolved]
  - Bronchial disorder [Not Recovered/Not Resolved]
  - Bronchial neoplasm [Not Recovered/Not Resolved]
  - Guillain-Barre syndrome [Fatal]
  - Respiratory failure [Not Recovered/Not Resolved]
  - Aortic valve incompetence [Not Recovered/Not Resolved]
  - Coma [Fatal]
  - Urinary tract infection enterococcal [Recovered/Resolved with Sequelae]
  - Cerebral artery stenosis [Not Recovered/Not Resolved]
  - Hypokalaemia [Not Recovered/Not Resolved]
  - Pyrexia [Unknown]

NARRATIVE: CASE EVENT DATE: 2017
